FAERS Safety Report 4325717-9 (Version None)
Quarter: 2004Q1

REPORT INFORMATION
  Report Type: 
  Country: None (occurrence: None)
  Receive Date: 20040324
  Receipt Date: 20040305
  Transmission Date: 20041129
  Serious: Yes (Hospitalization, Other)
  Sender: FDA-Public Use
  Company Number: DE_040313156

PATIENT
  Age: 51 Year
  Sex: Female

DRUGS (4)
  1. ZYPREXA [Suspect]
     Indication: DEPRESSION
     Dosage: 7.5 MG DAY
     Dates: start: 20031125
  2. AURORIX (MOCLOBEMIDE) [Concomitant]
  3. LORAZEPAM [Concomitant]
  4. DIPIPERON (PIPAMPERONE) [Concomitant]

REACTIONS (10)
  - CIRCULATORY COLLAPSE [None]
  - DRUG INTERACTION [None]
  - FALL [None]
  - FEELING ABNORMAL [None]
  - HEAD INJURY [None]
  - LOSS OF CONSCIOUSNESS [None]
  - ORTHOSTATIC HYPOTENSION [None]
  - SUPRAVENTRICULAR TACHYCARDIA [None]
  - VENTRICULAR EXTRASYSTOLES [None]
  - WOUND HAEMORRHAGE [None]
